FAERS Safety Report 12455413 (Version 1)
Quarter: 2016Q2

REPORT INFORMATION
  Report Type: Report from Study
  Country: JP (occurrence: JP)
  Receive Date: 20160610
  Receipt Date: 20160610
  Transmission Date: 20160815
  Serious: Yes (Other)
  Sender: FDA-Public Use
  Company Number: JP-MYLANLABS-2016M1024099

PATIENT

DRUGS (6)
  1. OXALIPLATIN. [Suspect]
     Active Substance: OXALIPLATIN
     Indication: RECTAL CANCER
     Dosage: 85MG/M2/2 HOURS IN PRINCIPLE DELIVERED ONCE EVERY 2 WEEKS
     Route: 041
  2. FLUOROURACIL. [Suspect]
     Active Substance: FLUOROURACIL
     Indication: RECTAL CANCER
     Dosage: 400MG/M2/2 HOURS IN PRINCIPLE DELIVERED ONCE EVERY 2 WEEKS
     Route: 040
  3. FLUOROURACIL. [Suspect]
     Active Substance: FLUOROURACIL
     Dosage: 2400 MG/M2/46 HOURS IN PRINCIPLE DELIVERED ONCE EVERY 2 WEEKS
     Route: 041
  4. LEVOFOLINATE [Suspect]
     Active Substance: LEVOLEUCOVORIN CALCIUM
     Indication: RECTAL CANCER
     Dosage: 200MG/M2/2 HOURS IN PRINCIPLE DELIVERED ONCE EVERY 2 WEEKS
     Route: 041
  5. BEVACIZUMAB [Suspect]
     Active Substance: BEVACIZUMAB
     Indication: RECTAL CANCER
     Route: 041
  6. FOLINIC ACID [Suspect]
     Active Substance: LEUCOVORIN
     Indication: RECTAL CANCER
     Route: 041

REACTIONS (2)
  - Rash [Unknown]
  - Leukopenia [Unknown]
